FAERS Safety Report 10908626 (Version 1)
Quarter: 2015Q1

REPORT INFORMATION
  Report Type: Spontaneous
  Country: US (occurrence: US)
  Receive Date: 20150312
  Receipt Date: 20150312
  Transmission Date: 20150721
  Serious: No
  Sender: FDA-Public Use
  Company Number: US-TEVA-544122USA

PATIENT
  Sex: Male
  Weight: 74 kg

DRUGS (2)
  1. AZILECT [Suspect]
     Active Substance: RASAGILINE MESYLATE
     Indication: PARKINSON^S DISEASE
     Route: 065
  2. ROPINIROLE XL [Concomitant]
     Active Substance: ROPINIROLE
     Indication: PARKINSON^S DISEASE

REACTIONS (3)
  - Insomnia [Not Recovered/Not Resolved]
  - Contusion [Not Recovered/Not Resolved]
  - Oedema peripheral [Not Recovered/Not Resolved]
